FAERS Safety Report 4338376-6 (Version None)
Quarter: 2004Q2

REPORT INFORMATION
  Report Type: 
  Country: None (occurrence: None)
  Receive Date: 20040409
  Receipt Date: 20040329
  Transmission Date: 20050107
  Serious: Yes (Death)
  Sender: FDA-Public Use
  Company Number: 2004AP01695

PATIENT
  Age: 50 Year
  Sex: Male

DRUGS (4)
  1. SEROQUEL [Suspect]
     Indication: SCHIZOPHRENIA
     Dosage: 100 MG BID PO
     Route: 048
     Dates: start: 20030725
  2. AKINETON [Concomitant]
  3. IMPROMEN [Concomitant]
  4. BETAZOL [Concomitant]

REACTIONS (9)
  - CARDIAC FAILURE [None]
  - HYPOTENSION [None]
  - HYPOTHERMIA [None]
  - KETOACIDOSIS [None]
  - OTORRHOEA [None]
  - PYREXIA [None]
  - SHOCK [None]
  - SWELLING FACE [None]
  - VOMITING [None]
